FAERS Safety Report 7139363-5 (Version None)
Quarter: 2010Q4

REPORT INFORMATION
  Report Type: 
  Country: None (occurrence: None)
  Receive Date: 20101206
  Receipt Date: 20101117
  Transmission Date: 20110411
  Serious: No
  Sender: FDA-Public Use
  Company Number: US-B.I. PHARMACEUTICALS,INC./RIDGEFIELD-2010-BP-12939BP

PATIENT
  Age: 75 Year
  Sex: Female

DRUGS (3)
  1. PRADAXA [Suspect]
     Indication: ATRIAL FIBRILLATION
     Dosage: 300 MG
     Route: 048
     Dates: start: 20101114
  2. LIPITOR [Concomitant]
     Indication: UNEVALUABLE EVENT
     Dates: start: 20010101
  3. DILTIZEM ER [Concomitant]
     Indication: HYPERTENSION
     Dosage: 180 MG
     Dates: start: 20010101

REACTIONS (1)
  - NASOPHARYNGITIS [None]
